FAERS Safety Report 7446497-4 (Version None)
Quarter: 2011Q2

REPORT INFORMATION
  Report Type: 
  Country: None (occurrence: None)
  Receive Date: 20110429
  Receipt Date: 20100726
  Transmission Date: 20111010
  Serious: No
  Sender: FDA-Public Use
  Company Number: US-ASTRAZENECA-2010SE34870

PATIENT
  Age: 71 Year
  Sex: Female

DRUGS (8)
  1. METHOTREXATE INJECTIONS [Concomitant]
  2. FOLIC ACID [Concomitant]
  3. ZOLOFT [Concomitant]
  4. REMICADE [Concomitant]
  5. GENERIC METOPROLOL TARTRATE [Concomitant]
  6. PREDNISOLONE [Concomitant]
  7. DIOVAN [Concomitant]
  8. NEXIUM [Suspect]
     Route: 048

REACTIONS (1)
  - RHEUMATOID ARTHRITIS [None]
